FAERS Safety Report 9278738 (Version 2)
Quarter: 2013Q2

REPORT INFORMATION
  Report Type: Spontaneous
  Country: JP (occurrence: None)
  Receive Date: 20130503
  Receipt Date: 20130516
  Transmission Date: 20140414
  Serious: Yes (Death, Other)
  Sender: FDA-Public Use
  Company Number: ADR-2013-00754

PATIENT
  Sex: Female

DRUGS (1)
  1. GABALON [Suspect]

REACTIONS (12)
  - Muscle spasms [None]
  - Altered state of consciousness [None]
  - Respiratory depression [None]
  - Inflammation [None]
  - Respiratory arrest [None]
  - Cardiac arrest [None]
  - Anaplastic astrocytoma [None]
  - Malignant neoplasm progression [None]
  - Pyrexia [None]
  - Infection [None]
  - Cerebral infarction [None]
  - Disease progression [None]
